FAERS Safety Report 9128555 (Version 5)
Quarter: 2013Q4

REPORT INFORMATION
  Report Type: Report from Study
  Country: JP (occurrence: JP)
  Receive Date: 20130228
  Receipt Date: 20131211
  Transmission Date: 20140711
  Serious: Yes (Life-Threatening, Hospitalization)
  Sender: FDA-Public Use
  Company Number: JP-ROCHE-1192044

PATIENT
  Age: 75 Year
  Sex: Female
  Weight: 47.8 kg

DRUGS (20)
  1. TRASTUZUMAB EMTANSINE [Suspect]
     Indication: BREAST CANCER METASTATIC
     Dosage: THE LAST DOSE PRIOR TO THE EVENT WAS 176.4 MG ON 29/JAN/2013.
     Route: 042
     Dates: start: 20110830, end: 20130129
  2. BLINDED PERTUZUMAB [Suspect]
     Indication: BREAST CANCER METASTATIC
     Dosage: THE LAST DOSE PRIOR TO THE EVENT WAS ON 29/JAN/2013.
     Route: 042
     Dates: start: 20110830, end: 20130129
  3. VEEN-D [Suspect]
     Indication: GASTROENTERITIS
     Route: 065
     Dates: start: 20130215, end: 20130219
  4. VASOLAN [Suspect]
     Indication: SUPRAVENTRICULAR TACHYCARDIA
     Route: 065
     Dates: start: 20130218
  5. VASOLAN [Suspect]
     Dosage: DOSE REDUCED FROM 4T/4X TO 3T/3X.
     Route: 065
     Dates: start: 20130613
  6. VASOLAN [Suspect]
     Dosage: DOSE REDUCED FROM 3T/3X TO 2T/2X.
     Route: 065
     Dates: start: 20131028
  7. SODIUM CHLORIDE [Suspect]
     Indication: PRODUCT USED FOR UNKNOWN INDICATION
     Route: 065
     Dates: start: 20130215, end: 20130218
  8. SODIUM CHLORIDE [Suspect]
     Route: 065
     Dates: start: 20130216, end: 20130216
  9. SODIUM CHLORIDE [Suspect]
     Route: 065
     Dates: start: 20130219, end: 20130219
  10. SODIUM CHLORIDE [Suspect]
     Route: 065
     Dates: start: 20130221, end: 20130226
  11. NATRIX [Concomitant]
     Indication: HYPERTENSION
     Route: 065
     Dates: end: 20130215
  12. LONGES [Concomitant]
     Indication: HYPERTENSION
     Route: 065
     Dates: end: 20130215
  13. HERBESSER [Concomitant]
     Indication: HYPERTENSION
     Route: 065
     Dates: end: 20130215
  14. MUCOSTA [Concomitant]
     Indication: GASTRITIS
     Route: 065
     Dates: end: 20130215
  15. LENDORMIN [Concomitant]
     Indication: INSOMNIA
     Route: 065
     Dates: end: 20130215
  16. LIVALO [Concomitant]
     Indication: HYPERLIPIDAEMIA
     Route: 065
     Dates: end: 20130215
  17. VOLTAREN [Concomitant]
     Indication: ARTHRALGIA
     Route: 065
     Dates: start: 20130215
  18. KENKETSU ALBUMIN [Concomitant]
     Indication: HYPOALBUMINAEMIA
     Route: 065
     Dates: start: 20130220, end: 20130222
  19. HIRUDOID (JAPAN) [Concomitant]
     Indication: PRURITUS
     Route: 065
     Dates: start: 20120208
  20. HIRUDOID (JAPAN) [Concomitant]
     Route: 065
     Dates: start: 20120208

REACTIONS (2)
  - Cardiac failure [Recovered/Resolved]
  - Gastroenteritis [Recovered/Resolved]
